FAERS Safety Report 13344753 (Version 1)
Quarter: 2017Q1

REPORT INFORMATION
  Report Type: Spontaneous
  Country: GB (occurrence: GB)
  Receive Date: 20170317
  Receipt Date: 20170317
  Transmission Date: 20170428
  Serious: Yes (Hospitalization)
  Sender: FDA-Public Use
  Company Number: GB-AMGEN-GBRSP2017014695

PATIENT
  Age: 79 Year
  Sex: Male

DRUGS (1)
  1. ENBREL [Suspect]
     Active Substance: ETANERCEPT
     Indication: RHEUMATOID ARTHRITIS
     Dosage: 50 MG, WEEKLY
     Route: 058

REACTIONS (11)
  - Pain [Unknown]
  - Urinary tract infection [Unknown]
  - Joint swelling [Unknown]
  - Joint range of motion decreased [Unknown]
  - Infection [Unknown]
  - Drug ineffective [Unknown]
  - Arthralgia [Unknown]
  - Limb injury [Unknown]
  - Pneumonia [Unknown]
  - Mobility decreased [Unknown]
  - Upper respiratory tract infection [Unknown]
